FAERS Safety Report 11172851 (Version 1)
Quarter: 2015Q2

REPORT INFORMATION
  Report Type: Spontaneous
  Country: US (occurrence: US)
  Receive Date: 20150608
  Receipt Date: 20150608
  Transmission Date: 20150821
  Serious: Yes (Hospitalization)
  Sender: FDA-Public Use
  Company Number: US-SA-2015SA013859

PATIENT
  Age: 57 Year
  Sex: Male

DRUGS (13)
  1. ALLEGRA [Concomitant]
     Active Substance: FEXOFENADINE HYDROCHLORIDE
  2. ALEMTUZUMAB [Suspect]
     Active Substance: ALEMTUZUMAB
     Route: 042
     Dates: start: 20101113, end: 20101218
  3. RITUXIMAB [Suspect]
     Active Substance: RITUXIMAB
     Dosage: DAY-1
     Route: 042
     Dates: start: 20101116, end: 20101215
  4. CYTOXAN [Suspect]
     Active Substance: CYCLOPHOSPHAMIDE
     Dosage: DAY: 3-5
     Route: 042
     Dates: start: 20101116, end: 20101218
  5. ALLOPURINOL. [Concomitant]
     Active Substance: ALLOPURINOL
  6. ZYRTEC [Concomitant]
     Active Substance: CETIRIZINE HYDROCHLORIDE
  7. COMPAZINE [Concomitant]
     Active Substance: PROCHLORPERAZINE MALEATE
     Indication: NAUSEA
     Route: 048
  8. FLUDARA [Suspect]
     Active Substance: FLUDARABINE PHOSPHATE
     Dosage: FEQUENCY: DAYS 3-5
     Route: 042
     Dates: start: 20101116, end: 20101218
  9. PROCHLORPERAZINE MALEATE. [Concomitant]
     Active Substance: PROCHLORPERAZINE MALEATE
  10. WELLBUTRIN [Concomitant]
     Active Substance: BUPROPION HYDROCHLORIDE
     Route: 048
  11. ZOLOFT [Concomitant]
     Active Substance: SERTRALINE HYDROCHLORIDE
     Route: 048
  12. ZOVIRAX [Concomitant]
     Active Substance: ACYCLOVIR
     Indication: ANTIVIRAL PROPHYLAXIS
  13. MEPRON [Concomitant]
     Active Substance: ATOVAQUONE

REACTIONS (7)
  - Sepsis [Recovered/Resolved]
  - Diarrhoea [Recovered/Resolved]
  - Dehydration [Recovered/Resolved]
  - Rotavirus infection [Recovered/Resolved]
  - Nausea [Recovered/Resolved]
  - Dysphagia [Recovered/Resolved]
  - Vomiting [Recovered/Resolved]

NARRATIVE: CASE EVENT DATE: 201012
